FAERS Safety Report 4775438-3 (Version None)
Quarter: 2005Q3

REPORT INFORMATION
  Report Type: 
  Country: None (occurrence: None)
  Receive Date: 20050921
  Receipt Date: 20050921
  Transmission Date: 20060218
  Serious: Yes (Hospitalization)
  Sender: FDA-Public Use
  Company Number: None

PATIENT
  Sex: Female
  Weight: 54 kg

DRUGS (2)
  1. EPZICOM [Suspect]
     Indication: HIV INFECTION
     Dosage: 300/150 DAILY PO
     Route: 048
     Dates: start: 20050906, end: 20050914
  2. ATAZANAVIR BMS [Suspect]
     Dosage: 150 MG X 2 DAILY PO
     Route: 048
     Dates: start: 20050906, end: 20050914

REACTIONS (9)
  - CONJUNCTIVAL DISORDER [None]
  - DRUG HYPERSENSITIVITY [None]
  - ERYTHEMA [None]
  - EXCORIATION [None]
  - MUCOSAL INFLAMMATION [None]
  - ORAL PAIN [None]
  - PYREXIA [None]
  - RASH GENERALISED [None]
  - RASH PAPULAR [None]
